APPROVED DRUG PRODUCT: TRIAZOLAM
Active Ingredient: TRIAZOLAM
Strength: 0.25MG
Dosage Form/Route: TABLET;ORAL
Application: A074031 | Product #002
Applicant: PHARMOBEDIENT CONSULTING LLC
Approved: Mar 25, 1994 | RLD: No | RS: No | Type: DISCN